FAERS Safety Report 7927025-3 (Version None)
Quarter: 2011Q4

REPORT INFORMATION
  Report Type: 
  Country: None (occurrence: None)
  Receive Date: 20111118
  Receipt Date: 20111110
  Transmission Date: 20120403
  Serious: Yes (Hospitalization)
  Sender: FDA-Public Use
  Company Number: US-BRISTOL-MYERS SQUIBB COMPANY-16225583

PATIENT
  Age: 64 Year
  Sex: Male
  Weight: 98 kg

DRUGS (9)
  1. CARBOPLATIN [Suspect]
     Indication: LUNG NEOPLASM MALIGNANT
     Route: 042
     Dates: start: 20111024
  2. MAGNESIUM OXIDE [Concomitant]
     Indication: PROPHYLAXIS
     Dates: start: 20110927
  3. POTASSIUM CHLORIDE [Concomitant]
     Indication: PROPHYLAXIS
     Dates: start: 20110927
  4. PACLITAXEL [Suspect]
     Indication: LUNG NEOPLASM MALIGNANT
     Dosage: ALSO 463MG
     Route: 042
     Dates: start: 20111024
  5. SPIRIVA [Concomitant]
     Indication: COUGH
     Dosage: INHALER
     Dates: start: 20110719
  6. BACTROBAN [Concomitant]
     Indication: PROPHYLAXIS
     Dates: start: 20110905
  7. COMPAZINE [Concomitant]
     Indication: NAUSEA
     Dates: start: 20110801
  8. LOVENOX [Concomitant]
     Indication: DEEP VEIN THROMBOSIS
     Dates: start: 20111005
  9. SYMBICORT [Concomitant]
     Indication: COUGH
     Dates: start: 20110719

REACTIONS (1)
  - SYNCOPE [None]
